FAERS Safety Report 6504521-7 (Version None)
Quarter: 2009Q4

REPORT INFORMATION
  Report Type: 
  Country: None (occurrence: None)
  Receive Date: 20091215
  Receipt Date: 20091130
  Transmission Date: 20100525
  Serious: Yes (Hospitalization)
  Sender: FDA-Public Use
  Company Number: TPA2009A03975

PATIENT
  Age: 80 Year
  Sex: Female

DRUGS (2)
  1. PREVACID [Suspect]
     Indication: DRUG USE FOR UNKNOWN INDICATION
     Dosage: 30 MG, 1 IN 1 D, PER ORAL
     Route: 048
  2. CRESTOR [Concomitant]

REACTIONS (2)
  - BILE DUCT OBSTRUCTION [None]
  - PANCREATIC CARCINOMA [None]
